FAERS Safety Report 9557844 (Version 4)
Quarter: 2013Q4

REPORT INFORMATION
  Report Type: Spontaneous
  Country: AU (occurrence: AU)
  Receive Date: 20130926
  Receipt Date: 20131023
  Transmission Date: 20140711
  Serious: Yes (Hospitalization)
  Sender: FDA-Public Use
  Company Number: AU-ABBVIE-13P-008-1139696-00

PATIENT
  Age: 47 Year
  Sex: Female

DRUGS (3)
  1. HUMIRA [Suspect]
     Indication: CROHN^S DISEASE
     Dosage: LOADING DOSE  ONLY HAD ONCE
     Dates: start: 20130821, end: 20130821
  2. PREDNISOLONE [Concomitant]
     Indication: PRODUCT USED FOR UNKNOWN INDICATION
     Dosage: WEANING DOSES
  3. AZATHIOPRINE [Concomitant]
     Indication: PRODUCT USED FOR UNKNOWN INDICATION

REACTIONS (7)
  - Jaundice [Recovering/Resolving]
  - Pain of skin [Unknown]
  - Burning sensation [Unknown]
  - Burning sensation [Unknown]
  - Pruritus [Recovered/Resolved]
  - Blood bilirubin abnormal [Recovering/Resolving]
  - Adverse drug reaction [Unknown]
